FAERS Safety Report 4519306-0 (Version None)
Quarter: 2004Q4

REPORT INFORMATION
  Report Type: 
  Country: None (occurrence: None)
  Receive Date: 20041206
  Receipt Date: 20040924
  Transmission Date: 20050328
  Serious: Yes (Hospitalization)
  Sender: FDA-Public Use
  Company Number: IE-GLAXOSMITHKLINE-B0346623A

PATIENT
  Age: 82 Year
  Sex: Female

DRUGS (7)
  1. AUGMENTIN '125' [Suspect]
     Indication: CELLULITIS
     Dosage: 1.2G PER DAY
     Route: 042
     Dates: start: 20040715, end: 20040719
  2. FLOXAPEN [Suspect]
     Indication: CELLULITIS
     Dosage: 500MG PER DAY
     Route: 042
     Dates: start: 20040715, end: 20040719
  3. ASPIRIN [Concomitant]
  4. THYROXINE [Concomitant]
  5. CARDURA XL [Concomitant]
  6. ZESTORETIC [Concomitant]
  7. CALCICHEW FORTE [Concomitant]

REACTIONS (1)
  - HEPATIC FUNCTION ABNORMAL [None]
